FAERS Safety Report 11291256 (Version 1)
Quarter: 2015Q3

REPORT INFORMATION
  Report Type: Spontaneous
  Country: US (occurrence: US)
  Receive Date: 20150722
  Receipt Date: 20150722
  Transmission Date: 20151125
  Serious: No
  Sender: FDA-Public Use
  Company Number: US-MYLANLABS-2015M1003555

PATIENT
  Sex: Female

DRUGS (1)
  1. ANASTROZOLE TABLETS [Suspect]
     Active Substance: ANASTROZOLE
     Dosage: 1 MG, QD

REACTIONS (1)
  - Rash [Not Recovered/Not Resolved]
